FAERS Safety Report 4468397-4 (Version None)
Quarter: 2004Q4

REPORT INFORMATION
  Report Type: 
  Country: None (occurrence: None)
  Receive Date: 20041007
  Receipt Date: 20040927
  Transmission Date: 20050328
  Serious: Yes (Hospitalization)
  Sender: FDA-Public Use
  Company Number: BR-BRISTOL-MYERS SQUIBB COMPANY-12713491

PATIENT
  Age: 65 Year
  Sex: Female
  Weight: 68 kg

DRUGS (3)
  1. RUBRANOVA INJ [Suspect]
     Indication: MYALGIA
     Route: 030
     Dates: start: 20040924
  2. CAPTOPRIL [Concomitant]
  3. HYDROCHLOROTHIAZIDE [Concomitant]

REACTIONS (4)
  - ARRHYTHMIA [None]
  - RESPIRATORY FAILURE [None]
  - SWELLING [None]
  - VISUAL DISTURBANCE [None]
